FAERS Safety Report 6146009-1 (Version None)
Quarter: 2009Q2

REPORT INFORMATION
  Report Type: 
  Country: None (occurrence: None)
  Receive Date: 20090406
  Receipt Date: 20090406
  Transmission Date: 20091009
  Serious: Yes (Hospitalization)
  Sender: FDA-Public Use
  Company Number: None

PATIENT
  Sex: Female
  Weight: 78.4723 kg

DRUGS (1)
  1. RECLAST [Suspect]

REACTIONS (6)
  - EYE INFLAMMATION [None]
  - IRIS DISORDER [None]
  - IRITIS [None]
  - PAIN [None]
  - TREMOR [None]
  - VOMITING [None]
